FAERS Safety Report 11655932 (Version 1)
Quarter: 2015Q4

REPORT INFORMATION
  Report Type: Spontaneous
  Country: CH (occurrence: CH)
  Receive Date: 20151023
  Receipt Date: 20151023
  Transmission Date: 20160304
  Serious: Yes (Hospitalization)
  Sender: FDA-Public Use
  Company Number: CH-TEVA-600162ISR

PATIENT
  Age: 69 Year
  Sex: Male

DRUGS (9)
  1. CALCIMAGON D3 FORTE [Concomitant]
     Dosage: 1 DOSAGE FORMS DAILY; 0-1-0
     Route: 065
  2. PANTOPRAZOLE [Concomitant]
     Active Substance: PANTOPRAZOLE SODIUM
     Dosage: 80 MILLIGRAM DAILY; PRECISE PREPARATION, DURATION AND INDICATION ARE NOT KNOWN
     Route: 048
  3. JANUMET [Suspect]
     Active Substance: METFORMIN HYDROCHLORIDE\SITAGLIPTIN PHOSPHATE
     Indication: TYPE 2 DIABETES MELLITUS
     Dosage: 2 DOSAGE FORMS DAILY; EXACT DURATION IS NOT KNOWN
     Route: 048
     Dates: end: 20150602
  4. ISCADOR [Concomitant]
     Active Substance: VISCUM ALBUM FRUITING TOP
     Route: 058
  5. EPRIL [Suspect]
     Active Substance: ENALAPRIL MALEATE
     Indication: HYPERTENSION
     Dosage: 20 MILLIGRAM DAILY;
     Route: 048
     Dates: end: 20150602
  6. EPRIL [Suspect]
     Active Substance: ENALAPRIL MALEATE
     Dosage: 20 MILLIGRAM DAILY;
     Route: 048
     Dates: start: 20150606
  7. ATORVASTATIN [Concomitant]
     Active Substance: ATORVASTATIN
     Dosage: 20 MILLIGRAM DAILY; PRECISE PREPARATION, DURATION AND INDICATION ARE NOT KNOWN
     Route: 048
  8. COMILORID-MEPHA [Suspect]
     Active Substance: AMILORIDE HYDROCHLORIDE\HYDROCHLOROTHIAZIDE
     Indication: HYPERTENSION
     Route: 048
     Dates: end: 20150602
  9. METFIN [Suspect]
     Active Substance: METFORMIN HYDROCHLORIDE
     Indication: TYPE 2 DIABETES MELLITUS
     Dosage: 1000 MILLIGRAM DAILY; EXACT DURATION IS NOT KNOWN
     Route: 048
     Dates: end: 20150602

REACTIONS (6)
  - Urosepsis [Unknown]
  - Pneumonia klebsiella [Unknown]
  - Hyperkalaemia [Recovered/Resolved]
  - Acute kidney injury [Recovered/Resolved]
  - Lactic acidosis [Recovered/Resolved]
  - Gastroenteritis [Unknown]

NARRATIVE: CASE EVENT DATE: 20150602
